FAERS Safety Report 13733819 (Version 1)
Quarter: 2017Q3

REPORT INFORMATION
  Report Type: Spontaneous
  Country: FR (occurrence: FR)
  Receive Date: 20170707
  Receipt Date: 20170707
  Transmission Date: 20171127
  Serious: Yes (Hospitalization)
  Sender: FDA-Public Use
  Company Number: FR-MERCK KGAA-2023097

PATIENT
  Age: 73 Year
  Sex: Female

DRUGS (5)
  1. RIVOTRIL [Concomitant]
     Active Substance: CLONAZEPAM
  2. DEPAKINE [Concomitant]
     Active Substance: VALPROATE SODIUM
  3. GARDENAL [Concomitant]
     Active Substance: PHENOBARBITAL
  4. KARDEGIC [Concomitant]
     Active Substance: ASPIRIN LYSINE
  5. NOVOTHYROX [Suspect]
     Active Substance: LEVOTHYROXINE SODIUM
     Indication: HYPOTHYROIDISM
     Dates: start: 201704

REACTIONS (4)
  - Inappropriate affect [Unknown]
  - Cerebellar syndrome [Recovered/Resolved]
  - Hyperhidrosis [Unknown]
  - Weight decreased [Unknown]

NARRATIVE: CASE EVENT DATE: 201706
